FAERS Safety Report 25864378 (Version 1)
Quarter: 2025Q3

REPORT INFORMATION
  Report Type: Spontaneous
  Country: US (occurrence: US)
  Receive Date: 20250930
  Receipt Date: 20250930
  Transmission Date: 20251020
  Serious: No
  Sender: GRIFOLS
  Company Number: US-IGSA-BIG0038203

PATIENT
  Age: 40 Year
  Sex: Male

DRUGS (3)
  1. GAMUNEX-C [Suspect]
     Active Substance: HUMAN IMMUNOGLOBULIN G
     Indication: Complications of transplanted lung
     Dosage: 45 GRAM, Q.4WK.
     Route: 042
  2. GAMUNEX-C [Suspect]
     Active Substance: HUMAN IMMUNOGLOBULIN G
     Indication: Off label use
     Dosage: 45 GRAM, Q.4WK.
     Route: 042
     Dates: start: 20190403
  3. ACETAMINOPHEN [Concomitant]
     Active Substance: ACETAMINOPHEN
     Indication: Product used for unknown indication

REACTIONS (1)
  - Urticaria [Unknown]

NARRATIVE: CASE EVENT DATE: 20250916
